FAERS Safety Report 10072225 (Version 2)
Quarter: 2014Q2

REPORT INFORMATION
  Report Type: Not Available
  Country: GB (occurrence: GB)
  Receive Date: 20140411
  Receipt Date: 20140623
  Transmission Date: 20141212
  Serious: Yes (Life-Threatening, Hospitalization)
  Sender: FDA-Public Use
  Company Number: GB-PURDUE-GBR-2014-0017775

PATIENT
  Age: 42 Year
  Sex: Male

DRUGS (8)
  1. MORPHINE SULFATE [Suspect]
     Indication: PAIN
     Dosage: 60 MG, BID
     Route: 065
  2. MORPHINE SULFATE [Suspect]
     Dosage: 50 MG, DAILY
     Route: 065
  3. DENZAPINE [Suspect]
     Indication: DEPRESSION
     Dosage: 300 MG, DAILY
     Route: 048
     Dates: start: 20130122
  4. DENZAPINE [Suspect]
     Indication: PSYCHOTIC DISORDER
  5. DIAZEPAM [Concomitant]
     Indication: MULTIPLE SCLEROSIS
     Dosage: 3 MG, DAILY
  6. DIAZEPAM [Concomitant]
     Dosage: 4 MG, DAILY
  7. DULOXETINE [Concomitant]
     Indication: DEPRESSION
     Dosage: 60 MG, DAILY
     Route: 048
  8. LITHIUM [Concomitant]
     Indication: DEPRESSION
     Dosage: 400 MG, DAILY

REACTIONS (7)
  - Oxygen saturation decreased [Recovered/Resolved]
  - Feeling of body temperature change [Recovered/Resolved]
  - Influenza like illness [Recovered/Resolved]
  - Nasal congestion [Recovered/Resolved]
  - Tachycardia [Recovered/Resolved]
  - Sleep apnoea syndrome [Recovered/Resolved]
  - Muscle twitching [Recovered/Resolved]
